FAERS Safety Report 8006132-3 (Version None)
Quarter: 2011Q4

REPORT INFORMATION
  Report Type: 
  Country: None (occurrence: None)
  Receive Date: 20111226
  Receipt Date: 20111213
  Transmission Date: 20120403
  Serious: Yes (Hospitalization, Other)
  Sender: FDA-Public Use
  Company Number: FR-ELI_LILLY_AND_COMPANY-FR201112003314

PATIENT
  Sex: Female

DRUGS (4)
  1. LANTUS [Concomitant]
  2. IMOVANE [Concomitant]
  3. ZYPREXA [Suspect]
     Indication: PSYCHOTIC DISORDER
     Dosage: 5 MG, QD
     Route: 048
     Dates: start: 20090101, end: 20111011
  4. ASPIRIN [Concomitant]

REACTIONS (6)
  - VOMITING [None]
  - ELECTROCARDIOGRAM QT PROLONGED [None]
  - BRADYCARDIA [None]
  - PNEUMONIA [None]
  - TREMOR [None]
  - URINARY TRACT INFECTION [None]
